FAERS Safety Report 21275329 (Version 1)
Quarter: 2022Q3

REPORT INFORMATION
  Report Type: Spontaneous
  Country: FR (occurrence: FR)
  Receive Date: 20220831
  Receipt Date: 20220831
  Transmission Date: 20221026
  Serious: Yes (Other)
  Sender: FDA-Public Use
  Company Number: FR-CELGENE-056-21880-12113506

PATIENT
  Age: 31 Year
  Sex: Female

DRUGS (6)
  1. VELCADE [Suspect]
     Active Substance: BORTEZOMIB
     Indication: Product used for unknown indication
     Dosage: 1 MILLIGRAM/SQ. METER
     Route: 050
     Dates: start: 20120625
  2. DEXAMETHASONE [Suspect]
     Active Substance: DEXAMETHASONE
     Indication: Product used for unknown indication
     Dosage: 40 MILLIGRAM
     Route: 050
     Dates: start: 20120625
  3. REVLIMID [Suspect]
     Active Substance: LENALIDOMIDE
     Indication: Product used for unknown indication
     Dosage: 15 MILLIGRAM, QD
     Route: 050
     Dates: start: 20121029, end: 20121111
  4. REVLIMID [Suspect]
     Active Substance: LENALIDOMIDE
     Dosage: 15 MILLIGRAM, QD
     Route: 050
     Dates: start: 20121020
  5. THALIDOMIDE [Suspect]
     Active Substance: THALIDOMIDE
     Indication: Product used for unknown indication
     Dosage: 100 MILLIGRAM, QD
     Route: 050
     Dates: start: 20120625, end: 20121013
  6. VALACYCLOVIR HYDROCHLORIDE [Concomitant]
     Active Substance: VALACYCLOVIR HYDROCHLORIDE
     Indication: Product used for unknown indication
     Dosage: 500 MILLIGRAM, QD
     Route: 065
     Dates: start: 20120625

REACTIONS (2)
  - Exposure via body fluid [Unknown]
  - Normal newborn [Unknown]

NARRATIVE: CASE EVENT DATE: 20130621
